FAERS Safety Report 8132072-5 (Version None)
Quarter: 2012Q1

REPORT INFORMATION
  Report Type: 
  Country: None (occurrence: None)
  Receive Date: 20120213
  Receipt Date: 20120208
  Transmission Date: 20120608
  Serious: Yes (Death, Other)
  Sender: FDA-Public Use
  Company Number: US-PFIZER INC-2011292220

PATIENT
  Sex: Female

DRUGS (5)
  1. CHANTIX [Suspect]
     Dosage: 0.5/1 MG, UNK
     Dates: start: 20090201, end: 20090301
  2. CHANTIX [Suspect]
     Dosage: 0.5/1 MG, UNK
     Dates: start: 20091001, end: 20091101
  3. CHANTIX [Suspect]
     Dosage: 0.5/1 MG, UNK
     Dates: start: 20080701, end: 20080801
  4. CHANTIX [Suspect]
     Dosage: 0.5/1 MG, UNK
     Dates: start: 20080201, end: 20080301
  5. CHANTIX [Suspect]
     Indication: SMOKING CESSATION THERAPY
     Dosage: 0.5/1 MG, UNK
     Dates: start: 20070701, end: 20071001

REACTIONS (8)
  - PARANOIA [None]
  - DEPRESSION [None]
  - COMPLETED SUICIDE [None]
  - ANXIETY [None]
  - AGGRESSION [None]
  - ABNORMAL BEHAVIOUR [None]
  - HOMICIDE [None]
  - TACHYPHRENIA [None]
